FAERS Safety Report 24567658 (Version 1)
Quarter: 2024Q4

REPORT INFORMATION
  Report Type: Report from Study
  Country: BR (occurrence: BR)
  Receive Date: 20241031
  Receipt Date: 20241031
  Transmission Date: 20250115
  Serious: Yes (Other)
  Sender: PANACEA BIOTEC PHARMA LIMITED
  Company Number: BR-PBT-009831

PATIENT
  Age: 67 Year
  Sex: Female

DRUGS (3)
  1. TACROLIMUS [Suspect]
     Active Substance: TACROLIMUS
     Indication: Prophylaxis against transplant rejection
     Dosage: IMMEDIATE-RELEASE, 8 AM AND 8 PM, ON AN EMPTY STOMACH
     Route: 048
  2. MYCOPHENOLATE MOFETIL [Suspect]
     Active Substance: MYCOPHENOLATE MOFETIL
     Indication: Prophylaxis against transplant rejection
     Route: 065
  3. PREDNISOLONE [Suspect]
     Active Substance: PREDNISOLONE
     Indication: Immunosuppression
     Dosage: 0.5 TO 1.0 MG.KG-1 OF WEIGHT
     Route: 065

REACTIONS (2)
  - Renal tubular necrosis [Unknown]
  - Drug level decreased [Unknown]
